FAERS Safety Report 5337838-2 (Version None)
Quarter: 2007Q2

REPORT INFORMATION
  Report Type: 
  Country: None (occurrence: None)
  Receive Date: 20070308
  Receipt Date: 20061213
  Transmission Date: 20071010
  Serious: No
  Sender: FDA-Public Use
  Company Number: 2006-BP-14513BP

PATIENT
  Age: 59 Year
  Sex: Female

DRUGS (6)
  1. SPIRIVA [Suspect]
     Indication: CHRONIC OBSTRUCTIVE PULMONARY DISEASE
     Dosage: 18 MCG (18 MCG, 1 CAP QD), IH
     Route: 055
     Dates: start: 20061130
  2. DILTIAZEM [Concomitant]
  3. SYNTHROID [Concomitant]
  4. ZYRTEC [Concomitant]
  5. LEXAPRO [Concomitant]
  6. DYAZIDE [Concomitant]

REACTIONS (4)
  - ANGER [None]
  - CRYING [None]
  - DEPRESSION [None]
  - IRRITABILITY [None]
